FAERS Safety Report 10285158 (Version 5)
Quarter: 2015Q2

REPORT INFORMATION
  Report Type: Report from Study
  Country: US (occurrence: US)
  Receive Date: 20140708
  Receipt Date: 20150528
  Transmission Date: 20150821
  Serious: Yes (Other)
  Sender: FDA-Public Use
  Company Number: US-SA-2013SA102459

PATIENT
  Age: 64 Year
  Sex: Female

DRUGS (1)
  1. AUBAGIO [Suspect]
     Active Substance: TERIFLUNOMIDE
     Indication: MULTIPLE SCLEROSIS
     Route: 048
     Dates: start: 20130909, end: 20140608

REACTIONS (10)
  - Rash [Recovered/Resolved]
  - Fatigue [Unknown]
  - Diarrhoea [Unknown]
  - Fibromyalgia [Unknown]
  - Arthritis [Unknown]
  - Cutaneous lupus erythematosus [Unknown]
  - Deafness [Unknown]
  - Flushing [Unknown]
  - Headache [Unknown]
  - Amnesia [Unknown]

NARRATIVE: CASE EVENT DATE: 20140527
